FAERS Safety Report 15515975 (Version 8)
Quarter: 2020Q3

REPORT INFORMATION
  Report Type: Spontaneous
  Country: US (occurrence: US)
  Receive Date: 20181017
  Receipt Date: 20200930
  Transmission Date: 20201102
  Serious: No
  Sender: FDA-Public Use
  Company Number: US-PFIZER INC-2018393118

PATIENT
  Age: 77 Year
  Sex: Female
  Weight: 68.04 kg

DRUGS (6)
  1. LYRICA [Suspect]
     Active Substance: PREGABALIN
     Dosage: 200 MG, 2X/DAY (ONE IN THE MORNING, ONE AT NIGHT)
     Route: 048
     Dates: start: 201510
  2. LYRICA [Suspect]
     Active Substance: PREGABALIN
     Dosage: 50 MG, 1X/DAY; (1 PO Q NOON)
     Route: 048
  3. LYRICA [Suspect]
     Active Substance: PREGABALIN
     Indication: TRIGEMINAL NEURALGIA
     Dosage: 100 MG, 3X/DAY
     Route: 048
  4. LYRICA [Suspect]
     Active Substance: PREGABALIN
     Indication: ACTION TREMOR
     Dosage: 300 MG, 3X/DAY
  5. LYRICA [Suspect]
     Active Substance: PREGABALIN
     Dosage: 100 MG, 1X/DAY, [2 PO IN THE MORNING]
     Route: 048
  6. LYRICA [Suspect]
     Active Substance: PREGABALIN
     Dosage: 150 MG, 1X/DAY [2 PO QHS]
     Route: 048

REACTIONS (8)
  - Gait disturbance [Unknown]
  - Thinking abnormal [Recovered/Resolved]
  - Tremor [Unknown]
  - Feeling drunk [Recovered/Resolved]
  - Musculoskeletal disorder [Recovered/Resolved]
  - Incorrect dose administered [Unknown]
  - Prescribed overdose [Unknown]
  - Pain [Unknown]

NARRATIVE: CASE EVENT DATE: 202002
